FAERS Safety Report 21304403 (Version 1)
Quarter: 2022Q3

REPORT INFORMATION
  Report Type: Spontaneous
  Country: US (occurrence: None)
  Receive Date: 20220907
  Receipt Date: 20220907
  Transmission Date: 20221027
  Serious: No
  Sender: FDA-Public Use
  Company Number: US-ARIS GLOBAL-202108-1361

PATIENT
  Age: 61 Year
  Sex: Male

DRUGS (11)
  1. OXERVATE [Suspect]
     Active Substance: CENEGERMIN-BKBJ
     Indication: Neurotrophic keratopathy
     Route: 047
     Dates: start: 20210729
  2. OXERVATE [Suspect]
     Active Substance: CENEGERMIN-BKBJ
     Indication: Hypoaesthesia eye
  3. MAGNESIUM [Concomitant]
     Active Substance: MAGNESIUM
  4. B12 ACTIVE [Concomitant]
  5. ASPIRIN [Concomitant]
     Active Substance: ASPIRIN
  6. LISINOPRIL [Concomitant]
     Active Substance: LISINOPRIL
  7. GABAPENTIN [Concomitant]
     Active Substance: GABAPENTIN
  8. SERTRALINE HYDROCHLORIDE [Concomitant]
     Active Substance: SERTRALINE HYDROCHLORIDE
  9. AMLODIPINE BESYLATE [Concomitant]
     Active Substance: AMLODIPINE BESYLATE
  10. LYRICA [Concomitant]
     Active Substance: PREGABALIN
  11. KEPPRA [Concomitant]
     Active Substance: LEVETIRACETAM

REACTIONS (2)
  - Eye swelling [Unknown]
  - Eye pain [Unknown]
